FAERS Safety Report 8357718-8 (Version None)
Quarter: 2012Q2

REPORT INFORMATION
  Report Type: 
  Country: None (occurrence: None)
  Receive Date: 20120514
  Receipt Date: 20120507
  Transmission Date: 20120825
  Serious: Yes (Hospitalization)
  Sender: FDA-Public Use
  Company Number: IL-B.I. PHARMACEUTICALS,INC./RIDGEFIELD-2011-RD-00088AP

PATIENT
  Sex: Male
  Weight: 83.8 kg

DRUGS (2)
  1. BI 1356 [Suspect]
     Indication: TYPE 2 DIABETES MELLITUS
     Dosage: 5 MG
     Dates: start: 20110213
  2. TRIAL PROCEDURE [Suspect]
     Indication: TYPE 2 DIABETES MELLITUS

REACTIONS (1)
  - HYPOGLYCAEMIA [None]
